FAERS Safety Report 6375712-3 (Version None)
Quarter: 2009Q3

REPORT INFORMATION
  Report Type: 
  Country: None (occurrence: None)
  Receive Date: 20090922
  Receipt Date: 20090922
  Transmission Date: 20100115
  Serious: Yes (Other)
  Sender: FDA-Public Use
  Company Number: None

PATIENT
  Sex: Male

DRUGS (2)
  1. SEROQUEL [Suspect]
  2. ABILIFY [Suspect]

REACTIONS (2)
  - DRUG DOSE OMISSION [None]
  - HOMICIDE [None]
